FAERS Safety Report 15113308 (Version 5)
Quarter: 2018Q3

REPORT INFORMATION
  Report Type: Report from Study
  Country: DE (occurrence: DE)
  Receive Date: 20180706
  Receipt Date: 20180802
  Transmission Date: 20181010
  Serious: Yes (Disabling, Other)
  Sender: FDA-Public Use
  Company Number: DE-BRISTOL-MYERS SQUIBB COMPANY-BMS-2018-061313

PATIENT
  Age: 79 Year
  Sex: Male

DRUGS (12)
  1. CANDESARTAN. [Concomitant]
     Active Substance: CANDESARTAN
     Indication: CEREBROVASCULAR DISORDER
     Dosage: 32 MG, UNK
     Route: 065
  2. LAXOBERAL [Concomitant]
     Active Substance: SODIUM PICOSULFATE
     Indication: PRODUCT USED FOR UNKNOWN INDICATION
     Dosage: 2.5 MG, UNK
     Route: 065
     Dates: start: 20171219
  3. NIVOLUMAB [Suspect]
     Active Substance: NIVOLUMAB
     Indication: RENAL CELL CARCINOMA
     Dosage: 3 MG/KG, Q2WK
     Route: 042
     Dates: start: 20171130, end: 20180509
  4. OXYCODON [Concomitant]
     Active Substance: OXYCODONE
     Indication: MALIGNANT NEOPLASM PROGRESSION
     Dosage: 20 MG, UNK
     Route: 065
  5. IBUPROFEN. [Concomitant]
     Active Substance: IBUPROFEN
     Indication: MALIGNANT NEOPLASM PROGRESSION
     Dosage: 1200 MG, UNK
     Route: 065
  6. XGEVA [Concomitant]
     Active Substance: DENOSUMAB
     Indication: MALIGNANT NEOPLASM PROGRESSION
     Dosage: 120 MG, UNK
     Route: 065
     Dates: start: 20170411
  7. LERCANIDIPINE [Concomitant]
     Active Substance: LERCANIDIPINE
     Indication: CEREBROVASCULAR DISORDER
     Dosage: 10 MG, UNK
     Route: 065
  8. METOHEXAL                          /00376902/ [Concomitant]
     Active Substance: METOPROLOL SUCCINATE
     Indication: CEREBROVASCULAR DISORDER
     Dosage: 47.5 MG, UNK
     Route: 065
  9. DEKRISTOL [Concomitant]
     Active Substance: CHOLECALCIFEROL
     Indication: MALIGNANT NEOPLASM PROGRESSION
     Dosage: 3000 IU, UNK
     Route: 065
     Dates: start: 20171219
  10. NATRILIX                           /00340101/ [Concomitant]
     Active Substance: INDAPAMIDE
     Indication: CEREBROVASCULAR DISORDER
     Dosage: 1.5 MG, UNK
     Route: 065
  11. CALCITRAT [Concomitant]
     Indication: MALIGNANT NEOPLASM PROGRESSION
     Dosage: 100 MG, UNK
     Route: 065
  12. INDAPAMID [Concomitant]
     Active Substance: INDAPAMIDE
     Indication: CEREBROVASCULAR DISORDER
     Dosage: 1.5 MG, UNK
     Route: 065
     Dates: start: 20171219

REACTIONS (2)
  - Malignant neoplasm progression [Unknown]
  - Pemphigoid [Recovering/Resolving]

NARRATIVE: CASE EVENT DATE: 20180313
